FAERS Safety Report 17459144 (Version 1)
Quarter: 2020Q1

REPORT INFORMATION
  Report Type: Spontaneous
  Country: US (occurrence: US)
  Receive Date: 20200212
  Receipt Date: 20200212
  Transmission Date: 20200409
  Serious: Yes (Hospitalization)
  Sender: FDA-Public Use
  Company Number: None

PATIENT
  Age: 49 Year
  Sex: Female

DRUGS (27)
  1. HYDROXYCHLOROQUINE [Concomitant]
     Active Substance: HYDROXYCHLOROQUINE
  2. VITAMIN B12 [Concomitant]
     Active Substance: CYANOCOBALAMIN
  3. FISH OIL [Concomitant]
     Active Substance: FISH OIL
  4. BROVOANA NEB SOLN [Concomitant]
  5. OPSUMIT [Suspect]
     Active Substance: MACITENTAN
     Indication: PULMONARY HYPERTENSION
     Route: 048
     Dates: start: 201909
  6. OMEPRAZOLE. [Concomitant]
     Active Substance: OMEPRAZOLE
  7. DULOXETINE. [Concomitant]
     Active Substance: DULOXETINE
  8. ESTRACE [Concomitant]
     Active Substance: ESTRADIOL
  9. SILDENAFIL. [Concomitant]
     Active Substance: SILDENAFIL
  10. URSODIOL. [Concomitant]
     Active Substance: URSODIOL
  11. PILOCARPINE. [Concomitant]
     Active Substance: PILOCARPINE
  12. BUPROPION. [Concomitant]
     Active Substance: BUPROPION
  13. FERROUS SULFATE. [Concomitant]
     Active Substance: FERROUS SULFATE
  14. NORCO [Concomitant]
     Active Substance: ACETAMINOPHEN\HYDROCODONE BITARTRATE
  15. FLONASE [Concomitant]
     Active Substance: FLUTICASONE PROPIONATE
  16. ALBUTEROL NEB SOLON [Concomitant]
  17. FLAXSEED [Concomitant]
     Active Substance: FLAX SEED
  18. ATORVASTATIN [Concomitant]
     Active Substance: ATORVASTATIN
  19. SUCRALFATE. [Concomitant]
     Active Substance: SUCRALFATE
  20. PULMICORT TURBUHALER [Concomitant]
     Active Substance: BUDESONIDE
  21. SERTRALINE [Concomitant]
     Active Substance: SERTRALINE HYDROCHLORIDE
  22. VITAMIN D3 [Concomitant]
     Active Substance: CHOLECALCIFEROL
  23. MODAFINIL. [Concomitant]
     Active Substance: MODAFINIL
  24. STIOLTO RESPIMAT [Concomitant]
     Active Substance: OLODATEROL HYDROCHLORIDE\TIOTROPIUM BROMIDE MONOHYDRATE
  25. METOCLOPRAMIDE. [Concomitant]
     Active Substance: METOCLOPRAMIDE
  26. CALCIUM CARBONATE. [Concomitant]
     Active Substance: CALCIUM CARBONATE
  27. VENTOLIN HFA [Concomitant]
     Active Substance: ALBUTEROL SULFATE

REACTIONS (5)
  - Back pain [None]
  - Interstitial lung disease [None]
  - Chest pain [None]
  - Dyspnoea [None]
  - Asthma [None]

NARRATIVE: CASE EVENT DATE: 20200205
